FAERS Safety Report 7685352-1 (Version None)
Quarter: 2011Q3

REPORT INFORMATION
  Report Type: 
  Country: None (occurrence: None)
  Receive Date: 20110815
  Receipt Date: 20110815
  Transmission Date: 20111222
  Serious: Yes (Other)
  Sender: FDA-Public Use
  Company Number: None

PATIENT
  Sex: Male
  Weight: 79.3795 kg

DRUGS (2)
  1. AVODART [Suspect]
     Indication: PROSTATOMEGALY
     Dosage: .5MG DAILY MOUTH
     Dates: start: 20091001, end: 20100601
  2. FLOMAX [Concomitant]

REACTIONS (2)
  - BREAST NEOPLASM [None]
  - GYNAECOMASTIA [None]
